FAERS Safety Report 4452963-6 (Version None)
Quarter: 2004Q3

REPORT INFORMATION
  Report Type: 
  Country: None (occurrence: None)
  Receive Date: 20040916
  Receipt Date: 20040902
  Transmission Date: 20050211
  Serious: Yes (Other)
  Sender: FDA-Public Use
  Company Number: 2004046845

PATIENT
  Age: 68 Year
  Sex: Male
  Weight: 100.2449 kg

DRUGS (4)
  1. VIAGRA [Suspect]
     Indication: ERECTILE DYSFUNCTION
     Dosage: (100 MG, AS NECESSARY), ORAL
     Route: 048
     Dates: start: 20010703
  2. LEVOFLOXACIN [Concomitant]
  3. IBUPROFEN [Concomitant]
  4. DIURETICS (DIURETICS) [Concomitant]

REACTIONS (2)
  - BENIGN PROSTATIC HYPERPLASIA [None]
  - INGUINAL HERNIA [None]
